FAERS Safety Report 8357163-5 (Version None)
Quarter: 2012Q2

REPORT INFORMATION
  Report Type: 
  Country: None (occurrence: None)
  Receive Date: 20120514
  Receipt Date: 20120510
  Transmission Date: 20120825
  Serious: Yes (Hospitalization)
  Sender: FDA-Public Use
  Company Number: FR-ROCHE-1044575

PATIENT
  Sex: Female
  Weight: 54 kg

DRUGS (8)
  1. LEUCOVORIN CALCIUM [Suspect]
     Dates: start: 20111228, end: 20111228
  2. FLUOROURACIL [Suspect]
     Dates: start: 20111228, end: 20111228
  3. AVASTIN [Suspect]
     Indication: COLORECTAL CANCER
     Dosage: DATE OF LAST DOSE PRIOR TO SAE 13/JUL/2011
     Route: 042
     Dates: start: 20110420
  4. IRINOTECAN HYDROCHLORIDE [Suspect]
     Indication: COLORECTAL CANCER
     Dates: start: 20111228, end: 20111228
  5. AVASTIN [Suspect]
     Dates: start: 20111228, end: 20111228
  6. OXALIPLATIN [Suspect]
     Indication: COLORECTAL CANCER
     Dosage: DATE OF LAST DOSE PRIOR TO SAE 19/SEP/2011
     Route: 042
     Dates: start: 20110420
  7. LEUCOVORIN CALCIUM [Suspect]
     Indication: COLORECTAL CANCER
     Dosage: DATE OF LAST DOSE PRIOR TO SAE 19/SEP/2011
     Route: 042
     Dates: start: 20110420
  8. FLUOROURACIL [Suspect]
     Indication: COLORECTAL CANCER
     Dosage: DATE OF LAST DOSE PRIOR TO SAE 19/SEP/2011
     Route: 042
     Dates: start: 20110420

REACTIONS (1)
  - GENERAL PHYSICAL HEALTH DETERIORATION [None]
